FAERS Safety Report 4967593-7 (Version None)
Quarter: 2006Q2

REPORT INFORMATION
  Report Type: 
  Country: None (occurrence: None)
  Receive Date: 20060403
  Receipt Date: 20060316
  Transmission Date: 20061013
  Serious: Yes (Hospitalization, Other)
  Sender: FDA-Public Use
  Company Number: 2006BI004301

PATIENT
  Age: 46 Year
  Sex: Female

DRUGS (2)
  1. NATALIZUMAB [Suspect]
     Indication: MULTIPLE SCLEROSIS
     Dosage: IV
     Route: 042
     Dates: start: 20050224, end: 20050224
  2. AVIONEX [Concomitant]

REACTIONS (3)
  - DYSPNOEA [None]
  - MALAISE [None]
  - PULMONARY OEDEMA [None]
